FAERS Safety Report 8895460 (Version 2)
Quarter: 2012Q4

REPORT INFORMATION
  Report Type: 
  Country: US (occurrence: US)
  Receive Date: 20121108
  Receipt Date: 20121221
  Transmission Date: 20130627
  Serious: No
  Sender: FDA-Public Use
  Company Number: US-BAYER-2012-114496

PATIENT
  Age: 47 Year
  Sex: Female
  Weight: 99.77 kg

DRUGS (1)
  1. MIRENA [Suspect]
     Dosage: 20 mcg/24hr, CONT
     Route: 015

REACTIONS (2)
  - Pregnancy with contraceptive device [None]
  - Drug ineffective [None]
